FAERS Safety Report 24379110 (Version 1)
Quarter: 2024Q3

REPORT INFORMATION
  Report Type: Spontaneous
  Country: TR (occurrence: TR)
  Receive Date: 20240930
  Receipt Date: 20240930
  Transmission Date: 20241016
  Serious: Yes (Hospitalization)
  Sender: MYLAN
  Company Number: TR-MYLANLABS-2024M1087630

PATIENT
  Age: 40 Year
  Sex: Male

DRUGS (5)
  1. VENLAFAXINE [Suspect]
     Active Substance: VENLAFAXINE HYDROCHLORIDE
     Indication: Generalised anxiety disorder
     Dosage: 150 MILLIGRAM, QD
     Route: 065
  2. VENLAFAXINE [Suspect]
     Active Substance: VENLAFAXINE HYDROCHLORIDE
     Dosage: 225 MILLIGRAM, QD
     Route: 065
  3. QUETIAPINE [Suspect]
     Active Substance: QUETIAPINE
     Indication: Generalised anxiety disorder
     Dosage: 25 MILLIGRAM
     Route: 065
  4. QUETIAPINE [Suspect]
     Active Substance: QUETIAPINE
     Dosage: 25 MILLIGRAM
     Route: 065
  5. QUETIAPINE [Suspect]
     Active Substance: QUETIAPINE
     Dosage: 25 MILLIGRAM
     Route: 065

REACTIONS (4)
  - Neuroleptic malignant syndrome [Recovered/Resolved]
  - Drug withdrawal syndrome [Recovered/Resolved]
  - Intentional product misuse [Recovered/Resolved]
  - Treatment noncompliance [Recovered/Resolved]
